FAERS Safety Report 9015742 (Version 2)
Quarter: 2013Q1

REPORT INFORMATION
  Report Type: Spontaneous
  Country: DE (occurrence: None)
  Receive Date: 20130102
  Receipt Date: 20130114
  Transmission Date: 20140127
  Serious: Yes (Other)
  Sender: FDA-Public Use
  Company Number: 1541271

PATIENT
  Age: 78 Year
  Sex: Female
  Weight: 75 kg

DRUGS (1)
  1. PAMIDRONIC ACID [Suspect]
     Indication: METASTASES TO BONE
     Route: 042

REACTIONS (2)
  - Osteonecrosis of jaw [None]
  - Gingival infection [None]
